FAERS Safety Report 6127310-4 (Version None)
Quarter: 2009Q1

REPORT INFORMATION
  Report Type: 
  Country: None (occurrence: None)
  Receive Date: 20090319
  Receipt Date: 20090305
  Transmission Date: 20090719
  Serious: Yes (Hospitalization)
  Sender: FDA-Public Use
  Company Number: 1-17768937

PATIENT
  Age: 15 Year
  Sex: Female

DRUGS (1)
  1. DYNACIN [Suspect]
     Indication: ACNE
     Dosage: 100MG DAILY, ORAL
     Route: 048

REACTIONS (4)
  - BASEDOW'S DISEASE [None]
  - DRUG RASH WITH EOSINOPHILIA AND SYSTEMIC SYMPTOMS [None]
  - IMMUNE SYSTEM DISORDER [None]
  - TYPE 1 DIABETES MELLITUS [None]
